FAERS Safety Report 6299377-4 (Version None)
Quarter: 2009Q3

REPORT INFORMATION
  Report Type: 
  Country: None (occurrence: None)
  Receive Date: 20090806
  Receipt Date: 20090803
  Transmission Date: 20100115
  Serious: Yes (Other)
  Sender: FDA-Public Use
  Company Number: MX-JNJFOC-20090801025

PATIENT
  Sex: Female

DRUGS (1)
  1. RISPERDAL CONSTA [Suspect]
     Indication: DRUG USE FOR UNKNOWN INDICATION
     Route: 030

REACTIONS (6)
  - ANXIETY [None]
  - APPLICATION SITE REACTION [None]
  - DRY MOUTH [None]
  - INSOMNIA [None]
  - PAIN [None]
  - PRODUCT COUNTERFEIT [None]
